FAERS Safety Report 4307027-9 (Version None)
Quarter: 2004Q1

REPORT INFORMATION
  Report Type: 
  Country: None (occurrence: None)
  Receive Date: 20040227
  Receipt Date: 20030907
  Transmission Date: 20041129
  Serious: Yes (Hospitalization)
  Sender: FDA-Public Use
  Company Number: ES-ROCHE-346328

PATIENT
  Age: 51 Year
  Sex: Male
  Weight: 69.5 kg

DRUGS (17)
  1. DACLIZUMAB [Suspect]
     Route: 042
     Dates: start: 20030718, end: 20030718
  2. DACLIZUMAB [Suspect]
     Route: 042
     Dates: start: 20030724, end: 20030724
  3. MYCOPHENOLIC ACID [Suspect]
     Route: 048
     Dates: start: 20030725, end: 20030812
  4. MYCOPHENOLATE MOFETIL [Suspect]
     Route: 048
     Dates: start: 20030813, end: 20030826
  5. MYCOPHENOLATE MOFETIL [Suspect]
     Route: 048
     Dates: start: 20030827, end: 20030902
  6. MYCOPHENOLATE MOFETIL [Suspect]
     Route: 048
     Dates: start: 20030903, end: 20040104
  7. MYCOPHENOLATE MOFETIL [Suspect]
     Route: 042
     Dates: start: 20030718, end: 20030724
  8. TACROLIMUS [Suspect]
     Dosage: DOSE ACCORDING TO BLOOD LEVELS
     Route: 048
     Dates: start: 20030718
  9. OMEPRAZOLE [Concomitant]
     Route: 048
     Dates: start: 20030308
  10. URSODEOXYCHOLIC ACID [Concomitant]
     Route: 048
     Dates: start: 20030816
  11. SEPTRA [Concomitant]
     Route: 048
     Dates: start: 20030718
  12. RESINCOLESTIRAMINA [Concomitant]
     Route: 048
     Dates: start: 20030816
  13. GANCICLOVIR [Concomitant]
     Dates: start: 20030905
  14. CEFOTAXIMA [Concomitant]
     Dates: start: 20031007, end: 20031014
  15. AMPICILIN [Concomitant]
     Dates: start: 20031007, end: 20031014
  16. CLEXANE [Concomitant]
     Dates: start: 20030718
  17. VIT. D [Concomitant]
     Route: 048
     Dates: start: 20030902

REACTIONS (4)
  - BILIARY TRACT DISORDER [None]
  - CHOLANGITIS [None]
  - CYTOMEGALOVIRUS INFECTION [None]
  - POST PROCEDURAL BILE LEAK [None]
